FAERS Safety Report 8900351 (Version 3)
Quarter: 2013Q3

REPORT INFORMATION
  Report Type: Spontaneous
  Country: JP (occurrence: JP)
  Receive Date: 20121109
  Receipt Date: 20130902
  Transmission Date: 20140515
  Serious: Yes (Hospitalization, Other)
  Sender: FDA-Public Use
  Company Number: JP-JNJFOC-20121102906

PATIENT
  Age: 5 Decade
  Sex: Female

DRUGS (1)
  1. TOPINA [Suspect]
     Indication: FRONTAL LOBE EPILEPSY
     Route: 048

REACTIONS (1)
  - Catatonia [Recovered/Resolved]
